FAERS Safety Report 14734031 (Version 2)
Quarter: 2018Q3

REPORT INFORMATION
  Report Type: Spontaneous
  Country: ES (occurrence: ES)
  Receive Date: 20180409
  Receipt Date: 20180703
  Transmission Date: 20181010
  Serious: Yes (Death)
  Sender: FDA-Public Use
  Company Number: ES-ALLERGAN-1816997US

PATIENT
  Age: 21 Year
  Sex: Female

DRUGS (4)
  1. DEXAMETASONA [Interacting]
     Active Substance: DEXAMETHASONE
     Indication: 17-ALPHA-HYDROXYLASE DEFICIENCY
     Dosage: 0.25 MG, QD
     Route: 048
     Dates: start: 2016, end: 20180227
  2. TRAZODONA [Interacting]
     Active Substance: TRAZODONE HYDROCHLORIDE
     Indication: DEPRESSION
     Dosage: 100 MG, QD
     Route: 048
     Dates: start: 20170807, end: 20180227
  3. HIDROCORTISONA [Concomitant]
     Active Substance: HYDROCORTISONE
     Indication: 17-ALPHA-HYDROXYLASE DEFICIENCY
     Dosage: 10 MG, QD
     Route: 048
     Dates: start: 20180227, end: 20180302
  4. CITALOPRAM HYDROBROMIDE UNK [Suspect]
     Active Substance: CITALOPRAM HYDROBROMIDE
     Indication: DEPRESSION
     Dosage: 20 MG, QD
     Route: 048
     Dates: start: 20170626, end: 20180227

REACTIONS (2)
  - Off label use [Unknown]
  - Cushing^s syndrome [Fatal]

NARRATIVE: CASE EVENT DATE: 20180227
